FAERS Safety Report 24639993 (Version 3)
Quarter: 2025Q1

REPORT INFORMATION
  Report Type: Spontaneous
  Country: US (occurrence: US)
  Receive Date: 20241120
  Receipt Date: 20250327
  Transmission Date: 20250409
  Serious: No
  Sender: SANOFI AVENTIS
  Company Number: US-SA-2024SA334465

PATIENT
  Age: 57 Year
  Sex: Male

DRUGS (3)
  1. DUPIXENT [Suspect]
     Active Substance: DUPILUMAB
     Indication: Asthma
     Route: 058
     Dates: start: 20240411, end: 20240411
  2. DUPIXENT [Suspect]
     Active Substance: DUPILUMAB
     Indication: Nasal polyps
     Dosage: 300 MG, QOW
     Route: 058
     Dates: start: 202404, end: 202501
  3. DUPIXENT [Suspect]
     Active Substance: DUPILUMAB
     Dosage: 300 MG, QOW
     Route: 058
     Dates: start: 202503

REACTIONS (6)
  - Nasal disorder [Unknown]
  - Condition aggravated [Unknown]
  - Nasal congestion [Unknown]
  - Condition aggravated [Unknown]
  - Illness [Unknown]
  - Rebound effect [Recovering/Resolving]

NARRATIVE: CASE EVENT DATE: 20240101
